FAERS Safety Report 7933645-2 (Version None)
Quarter: 2011Q4

REPORT INFORMATION
  Report Type: 
  Country: None (occurrence: None)
  Receive Date: 20111122
  Receipt Date: 20111108
  Transmission Date: 20120403
  Serious: Yes (Other)
  Sender: FDA-Public Use
  Company Number: CZ-CELGENEUS-217-20785-11111272

PATIENT
  Sex: Male

DRUGS (3)
  1. CYCLOPHOSPHAMIDE [Concomitant]
     Indication: CASTLEMAN'S DISEASE
     Route: 065
     Dates: start: 20090301
  2. THALIDOMIDE [Suspect]
     Indication: CASTLEMAN'S DISEASE
     Route: 048
     Dates: start: 20090301
  3. DEXAMETHASONE [Suspect]
     Indication: CASTLEMAN'S DISEASE
     Route: 065
     Dates: start: 20090301

REACTIONS (2)
  - CUSHING'S SYNDROME [None]
  - NEUROPATHY PERIPHERAL [None]
